FAERS Safety Report 5964908-8 (Version None)
Quarter: 2008Q4

REPORT INFORMATION
  Report Type: 
  Country: None (occurrence: None)
  Receive Date: 20081125
  Receipt Date: 20081111
  Transmission Date: 20090506
  Serious: Yes (Hospitalization, Other)
  Sender: FDA-Public Use
  Company Number: PHHO2008US13420

PATIENT
  Sex: Female
  Weight: 70.295 kg

DRUGS (29)
  1. LOPRESSOR [Suspect]
     Indication: HYPERTENSION
     Dosage: 25 MG, QD
     Route: 048
     Dates: start: 20030812, end: 20040308
  2. LOPRESSOR [Suspect]
     Dosage: 50 MG, QD
     Route: 048
     Dates: start: 20040309, end: 20040310
  3. LOPRESSOR [Suspect]
     Dosage: 25 MG, QD
     Route: 048
     Dates: start: 20040310, end: 20041006
  4. LOPRESSOR [Suspect]
     Dosage: 50 MG, QD
     Route: 048
     Dates: start: 20041007
  5. SINEMET [Suspect]
     Indication: PARKINSON'S DISEASE
     Dosage: 100 MG, QID
     Route: 048
     Dates: start: 20031231, end: 20040107
  6. SINEMET [Suspect]
     Dosage: 100 MG, TID
     Route: 048
     Dates: start: 20040107, end: 20050228
  7. SINEMET [Suspect]
     Dosage: 100 MG, QID
     Route: 048
     Dates: start: 20050301
  8. ROTIGOTINE [Suspect]
     Dosage: 16 MG DAILY
     Route: 062
     Dates: start: 20030530
  9. BENZOCAINE [Concomitant]
  10. MELOXICAM [Concomitant]
  11. ETODOLAC [Concomitant]
  12. DIPHENHYDRAMINE HYDROCHLORIDE [Concomitant]
  13. TOCOPHEROL CONCENTRATE CAP [Concomitant]
     Dosage: UNK
  14. BISACODYL [Concomitant]
  15. NABUMETONE [Concomitant]
  16. OXYCODONE HCL [Concomitant]
  17. ZOLPIDEM [Concomitant]
     Dosage: UNK
  18. IBUPROFEN TABLETS [Concomitant]
     Dosage: UNK
  19. DEXTROPROPOXYPHENE [Concomitant]
     Dosage: UNK
  20. PARACETAMOL [Concomitant]
  21. CLORAZEPATE DIPOTASSIUM [Concomitant]
  22. CIPROFLOXACIN [Concomitant]
  23. ISPAGHULA HUSK [Concomitant]
     Dosage: UNK
  24. PHENOLPHTHALEIN [Concomitant]
  25. TEMAZEPAM [Concomitant]
     Dosage: UNK
  26. GATIFLOXACIN [Concomitant]
  27. OXYCODONE HYDROCHL W/OXYCODONE TEREPH/PARACET [Concomitant]
  28. PLANTAGO OVATA [Concomitant]
     Dosage: UNK
  29. ROFECOXIB [Concomitant]

REACTIONS (8)
  - CALCULUS URETERIC [None]
  - CALCULUS URETHRAL [None]
  - HIGH FREQUENCY ABLATION [None]
  - HYDRONEPHROSIS [None]
  - NEPHROLITHIASIS [None]
  - OBSTRUCTIVE UROPATHY [None]
  - RENAL CELL CARCINOMA [None]
  - URINARY TRACT INFECTION [None]
